FAERS Safety Report 6412698-7 (Version None)
Quarter: 2009Q4

REPORT INFORMATION
  Report Type: 
  Country: None (occurrence: None)
  Receive Date: 20091023
  Receipt Date: 20091020
  Transmission Date: 20100525
  Serious: Yes (Death, Other)
  Sender: FDA-Public Use
  Company Number: PHHY2009BR32316

PATIENT
  Sex: Female

DRUGS (1)
  1. EXELON [Suspect]
     Indication: DEMENTIA ALZHEIMER'S TYPE
     Dosage: 1 PATCH/DAY
     Route: 062
     Dates: start: 20090501

REACTIONS (3)
  - CONDITION AGGRAVATED [None]
  - LUNG DISORDER [None]
  - MULTI-ORGAN FAILURE [None]
